FAERS Safety Report 9192427 (Version 2)
Quarter: 2013Q2

REPORT INFORMATION
  Report Type: Spontaneous
  Country: IT (occurrence: IT)
  Receive Date: 20130327
  Receipt Date: 20130402
  Transmission Date: 20140414
  Serious: Yes (Hospitalization)
  Sender: FDA-Public Use
  Company Number: IT-ELI_LILLY_AND_COMPANY-IT201303006694

PATIENT
  Age: 44 Year
  Sex: Female

DRUGS (6)
  1. HUMAN INSULIN [Suspect]
     Dosage: UNK
     Route: 030
     Dates: end: 20130310
  2. CITALOPRAM [Concomitant]
     Dosage: UNK
     Route: 048
     Dates: end: 20130310
  3. METFORMIN [Concomitant]
     Dosage: UNK
     Route: 048
     Dates: end: 20130310
  4. MINIAS [Concomitant]
     Dosage: UNK
     Route: 048
     Dates: end: 20130310
  5. CHLORDESMETHYLDIAZEPAM [Concomitant]
     Dosage: UNK
     Route: 048
     Dates: end: 20130310
  6. AMARYL [Concomitant]
     Dosage: UNK
     Route: 048
     Dates: end: 20130310

REACTIONS (3)
  - Toxicity to various agents [Recovering/Resolving]
  - Drug abuse [Recovering/Resolving]
  - Incorrect route of drug administration [Recovered/Resolved]
